FAERS Safety Report 23431726 (Version 1)
Quarter: 2024Q1

REPORT INFORMATION
  Report Type: Spontaneous
  Country: HR (occurrence: HR)
  Receive Date: 20240123
  Receipt Date: 20240123
  Transmission Date: 20240409
  Serious: Yes (Hospitalization)
  Sender: FDA-Public Use
  Company Number: HR-Accord-402365

PATIENT
  Age: 28 Year
  Sex: Female

DRUGS (3)
  1. PROGESTERONE [Suspect]
     Active Substance: PROGESTERONE
     Indication: Haemorrhage
  2. CEFUROXIME [Suspect]
     Active Substance: CEFUROXIME
     Indication: Asymptomatic bacteriuria
  3. AZITHROMYCIN [Suspect]
     Active Substance: AZITHROMYCIN
     Indication: Cervicitis

REACTIONS (4)
  - Maternal exposure during pregnancy [Unknown]
  - Preterm premature rupture of membranes [Unknown]
  - Foetal death [Unknown]
  - Premature delivery [Unknown]
